FAERS Safety Report 7267854-5 (Version None)
Quarter: 2011Q1

REPORT INFORMATION
  Report Type: 
  Country: None (occurrence: None)
  Receive Date: 20110201
  Receipt Date: 20110128
  Transmission Date: 20110831
  Serious: Yes (Hospitalization)
  Sender: FDA-Public Use
  Company Number: B0696976A

PATIENT
  Age: 49 Year
  Sex: Male

DRUGS (1)
  1. AVANDIA [Suspect]
     Indication: DIABETES MELLITUS
     Dates: start: 20030301, end: 20050101

REACTIONS (4)
  - HEART RATE IRREGULAR [None]
  - SWELLING [None]
  - CEREBROVASCULAR ACCIDENT [None]
  - VOCAL CORD PARALYSIS [None]
